FAERS Safety Report 9312445 (Version 2)
Quarter: 2013Q2

REPORT INFORMATION
  Report Type: Spontaneous
  Country: US (occurrence: None)
  Receive Date: 20130507
  Receipt Date: 20130516
  Transmission Date: 20140414
  Serious: Yes (Other)
  Sender: FDA-Public Use
  Company Number: 2013PROUSA02763

PATIENT
  Age: 61 Year
  Sex: Male
  Weight: 113.4 kg

DRUGS (3)
  1. PROVENGE [Suspect]
     Indication: PROSTATE CANCER METASTATIC
     Dosage: 250 ML, SINGLE, INTRAVENOUS
     Route: 042
     Dates: start: 20130422, end: 20130422
  2. CASODEX (BICALUTAMIDE) [Concomitant]
  3. ELIGARD (LEUPRORELIN ACETATE) [Concomitant]

REACTIONS (2)
  - Wrong drug administered [None]
  - No adverse event [None]
